FAERS Safety Report 4997049-7 (Version None)
Quarter: 2006Q2

REPORT INFORMATION
  Report Type: 
  Country: None (occurrence: None)
  Receive Date: 20060505
  Receipt Date: 20060426
  Transmission Date: 20061013
  Serious: Yes (Hospitalization)
  Sender: FDA-Public Use
  Company Number: 2006BI003431

PATIENT
  Age: 57 Year
  Sex: Female

DRUGS (8)
  1. AVONEX [Suspect]
     Indication: MULTIPLE SCLEROSIS
     Dosage: IM
     Route: 030
     Dates: start: 20040101
  2. LIPITOR [Concomitant]
  3. NORVASC [Concomitant]
  4. BACLOFEN [Concomitant]
  5. PLAVIX [Concomitant]
  6. TYLENOL (CAPLET) [Concomitant]
  7. SKELAXIN [Concomitant]
  8. DILAUDID [Concomitant]

REACTIONS (3)
  - FALL [None]
  - HYPERLIPIDAEMIA [None]
  - HYPERTENSION [None]
